FAERS Safety Report 17824656 (Version 2)
Quarter: 2020Q3

REPORT INFORMATION
  Report Type: Spontaneous
  Country: US (occurrence: US)
  Receive Date: 20200526
  Receipt Date: 20200924
  Transmission Date: 20201102
  Serious: No
  Sender: FDA-Public Use
  Company Number: US-ASTRAZENECA-2020SE64712

PATIENT
  Age: 68 Year
  Sex: Female
  Weight: 69.85 kg

DRUGS (9)
  1. ROSUVASTATIN. [Suspect]
     Active Substance: ROSUVASTATIN
     Route: 048
  2. MOVANTIK [Suspect]
     Active Substance: NALOXEGOL OXALATE
     Indication: CONSTIPATION
     Dosage: 25 MG
     Route: 048
     Dates: start: 20200513
  3. METFORMIN [Concomitant]
     Active Substance: METFORMIN HYDROCHLORIDE
  4. SPIRONOLACTONE. [Concomitant]
     Active Substance: SPIRONOLACTONE
  5. TRAMADOL. [Concomitant]
     Active Substance: TRAMADOL
  6. ASPIRIN. [Concomitant]
     Active Substance: ASPIRIN
     Dosage: 81 MG
  7. LOSARTAN POTASSIUM. [Concomitant]
     Active Substance: LOSARTAN POTASSIUM
  8. SYNTHROID [Concomitant]
     Active Substance: LEVOTHYROXINE SODIUM
  9. OXYCODONE [Concomitant]
     Active Substance: OXYCODONE

REACTIONS (4)
  - Drug ineffective [Unknown]
  - Abdominal discomfort [Unknown]
  - Discomfort [Unknown]
  - Intentional product misuse [Unknown]

NARRATIVE: CASE EVENT DATE: 20200514
